FAERS Safety Report 8069457-1 (Version None)
Quarter: 2012Q1

REPORT INFORMATION
  Report Type: 
  Country: None (occurrence: None)
  Receive Date: 20120125
  Receipt Date: 20120118
  Transmission Date: 20120608
  Serious: Yes (Hospitalization)
  Sender: FDA-Public Use
  Company Number: FR-JNJFOC-20120109071

PATIENT
  Sex: Male

DRUGS (7)
  1. CITALOPRAM HYDROBROMIDE [Concomitant]
     Route: 065
  2. EXELON [Concomitant]
     Route: 062
  3. HALDOL [Suspect]
     Indication: PRODUCT USED FOR UNKNOWN INDICATION
     Route: 048
     Dates: start: 20110216, end: 20110901
  4. TIAPRIDAL [Suspect]
     Indication: PRODUCT USED FOR UNKNOWN INDICATION
     Route: 048
     Dates: start: 20110822, end: 20110901
  5. PRAZEPAM [Suspect]
     Indication: PRODUCT USED FOR UNKNOWN INDICATION
     Route: 065
     Dates: end: 20110901
  6. ALFUZOSIN HCL [Concomitant]
     Route: 048
  7. EQUANIL [Suspect]
     Indication: PRODUCT USED FOR UNKNOWN INDICATION
     Route: 048
     Dates: end: 20110901

REACTIONS (1)
  - ABNORMAL BEHAVIOUR [None]
